FAERS Safety Report 11618332 (Version 1)
Quarter: 2015Q4

REPORT INFORMATION
  Report Type: Spontaneous
  Country: US (occurrence: US)
  Receive Date: 20151012
  Receipt Date: 20151012
  Transmission Date: 20160304
  Serious: Yes (Other)
  Sender: FDA-Public Use
  Company Number: US-JNJCP-30000307916

PATIENT
  Sex: Female

DRUGS (2)
  1. JOHNSON^S PRODUCTS (DIMETHICONE) [Suspect]
     Active Substance: DIMETHICONE
     Indication: PRODUCT USED FOR UNKNOWN INDICATION
     Route: 061
  2. COSMETICS [Suspect]
     Active Substance: COSMETICS

REACTIONS (1)
  - Leukaemia [Not Recovered/Not Resolved]
